FAERS Safety Report 7310818-3 (Version None)
Quarter: 2011Q1

REPORT INFORMATION
  Report Type: 
  Country: None (occurrence: None)
  Receive Date: 20110224
  Receipt Date: 20110221
  Transmission Date: 20110831
  Serious: Yes (Life-Threatening, Hospitalization, Other)
  Sender: FDA-Public Use
  Company Number: PHHY2011US06192

PATIENT
  Sex: Female

DRUGS (1)
  1. RECLAST [Suspect]
     Indication: OSTEOPOROSIS
     Dosage: 5 MG
     Route: 042
     Dates: start: 20110121

REACTIONS (16)
  - VENOUS PRESSURE JUGULAR INCREASED [None]
  - HEART RATE IRREGULAR [None]
  - BRADYCARDIA [None]
  - OEDEMA PERIPHERAL [None]
  - PULMONARY OEDEMA [None]
  - COUGH [None]
  - HYPERTENSION [None]
  - FATIGUE [None]
  - URINARY TRACT INFECTION [None]
  - PAIN [None]
  - CARDIAC FAILURE CONGESTIVE [None]
  - CHEST DISCOMFORT [None]
  - PALPITATIONS [None]
  - PYREXIA [None]
  - RENAL FAILURE ACUTE [None]
  - GALLOP RHYTHM PRESENT [None]
